FAERS Safety Report 6554008-0 (Version None)
Quarter: 2010Q1

REPORT INFORMATION
  Report Type: 
  Country: None (occurrence: None)
  Receive Date: 20100127
  Receipt Date: 20100116
  Transmission Date: 20100710
  Serious: Yes (Other)
  Sender: FDA-Public Use
  Company Number: US-JNJFOC-20100108711

PATIENT
  Age: 49 Year
  Sex: Female

DRUGS (1)
  1. EXTRA STRENGTH TYLENOL PM [Suspect]
     Indication: SLEEP DISORDER THERAPY
     Route: 048

REACTIONS (8)
  - CHILLS [None]
  - CONTUSION [None]
  - DIARRHOEA [None]
  - DYSGEUSIA [None]
  - FALL [None]
  - PRODUCT QUALITY ISSUE [None]
  - SYNCOPE [None]
  - VOMITING [None]
